FAERS Safety Report 7324817-9 (Version None)
Quarter: 2011Q1

REPORT INFORMATION
  Report Type: 
  Country: None (occurrence: None)
  Receive Date: 20110301
  Receipt Date: 20110224
  Transmission Date: 20110831
  Serious: Yes (Other)
  Sender: FDA-Public Use
  Company Number: JP-PFIZER INC-2011029434

PATIENT
  Age: 57 Year
  Sex: Female

DRUGS (7)
  1. ENALAPRIL [Concomitant]
     Indication: HYPERTENSION
     Dosage: UNK
     Route: 048
  2. LYRICA [Suspect]
     Indication: POST HERPETIC NEURALGIA
     Dosage: 75 MG, DAILY
     Route: 048
     Dates: start: 20110125, end: 20110207
  3. OLMETEC [Concomitant]
     Indication: HYPERTENSION
     Dosage: UNK
     Route: 048
  4. AMLODIPINE [Concomitant]
     Indication: HYPERTENSION
     Dosage: UNK
     Route: 048
  5. FLUITRAN [Concomitant]
     Indication: HYPERTENSION
     Dosage: UNK
     Route: 048
  6. YOUCOBAL [Concomitant]
     Indication: HERPES ZOSTER
     Dosage: UNK
     Route: 048
  7. NEUROTROPIN [Concomitant]
     Indication: HERPES ZOSTER
     Dosage: UNK
     Route: 048

REACTIONS (3)
  - FALL [None]
  - LOSS OF CONSCIOUSNESS [None]
  - MUSCULOSKELETAL STIFFNESS [None]
